FAERS Safety Report 14983002 (Version 2)
Quarter: 2018Q2

REPORT INFORMATION
  Report Type: Spontaneous
  Country: CA (occurrence: CA)
  Receive Date: 20180607
  Receipt Date: 20180612
  Transmission Date: 20180711
  Serious: Yes (Hospitalization, Other)
  Sender: FDA-Public Use
  Company Number: CA-GLAXOSMITHKLINE-CA2018GSK098680

PATIENT
  Sex: Female

DRUGS (2)
  1. HALDOL [Suspect]
     Active Substance: HALOPERIDOL
     Indication: NAUSEA
     Dosage: UNK
  2. BENLYSTA [Suspect]
     Active Substance: BELIMUMAB
     Indication: SYSTEMIC LUPUS ERYTHEMATOSUS
     Dosage: 580 MG, UNK

REACTIONS (5)
  - Seizure [Unknown]
  - Foreign body in respiratory tract [Unknown]
  - Nausea [Unknown]
  - Dyspnoea [Unknown]
  - Ulcer [Unknown]
